FAERS Safety Report 6183014-3 (Version None)
Quarter: 2009Q2

REPORT INFORMATION
  Report Type: 
  Country: None (occurrence: None)
  Receive Date: 20090507
  Receipt Date: 20090504
  Transmission Date: 20091009
  Serious: No
  Sender: FDA-Public Use
  Company Number: US-B.I. PHARMACEUTICALS,INC./RIDGEFIELD-2009-BP-05628BP

PATIENT
  Sex: Female

DRUGS (4)
  1. SPIRIVA [Suspect]
     Indication: CHRONIC OBSTRUCTIVE PULMONARY DISEASE
     Dates: start: 20070101
  2. ALBUTEROL [Concomitant]
     Indication: DYSPNOEA
  3. ADVAIR HFA [Concomitant]
     Indication: DYSPNOEA
  4. COMBIVENT [Concomitant]
     Indication: DYSPNOEA

REACTIONS (1)
  - DRY MOUTH [None]
